FAERS Safety Report 18395993 (Version 9)
Quarter: 2023Q2

REPORT INFORMATION
  Report Type: Spontaneous
  Country: CA (occurrence: CA)
  Receive Date: 20201018
  Receipt Date: 20230620
  Transmission Date: 20230721
  Serious: Yes (Other)
  Sender: FDA-Public Use
  Company Number: CA-CELLTRION INC.-2019CA023683

PATIENT

DRUGS (36)
  1. INFLECTRA [Suspect]
     Active Substance: INFLIXIMAB-DYYB
     Indication: Colitis ulcerative
     Dosage: 5 MG/KG, INDUCTION WEEKS AT 0, 2, 6 WEEKS THEN EVERY 8 WEEKS
     Route: 042
     Dates: start: 20190601, end: 20190716
  2. INFLECTRA [Suspect]
     Active Substance: INFLIXIMAB-DYYB
     Dosage: 10 MG/KG, EVERY 6 WEEKS
     Route: 042
     Dates: start: 20190827
  3. INFLECTRA [Suspect]
     Active Substance: INFLIXIMAB-DYYB
     Dosage: 10 MG/KG, EVERY 6 WEEKS
     Route: 042
     Dates: start: 20190827
  4. INFLECTRA [Suspect]
     Active Substance: INFLIXIMAB-DYYB
     Dosage: 10 MG/KG, EVERY 6 WEEKS
     Route: 042
     Dates: start: 20190827
  5. INFLECTRA [Suspect]
     Active Substance: INFLIXIMAB-DYYB
     Dosage: 10 MG/KG, EVERY 6 WEEKS
     Route: 042
     Dates: start: 20191120
  6. INFLECTRA [Suspect]
     Active Substance: INFLIXIMAB-DYYB
     Dosage: 10 MG/KG, EVERY 6 WEEKS
     Route: 042
     Dates: start: 20200526
  7. INFLECTRA [Suspect]
     Active Substance: INFLIXIMAB-DYYB
     Dosage: 10 MG/KG, EVERY 6 WEEKS
     Route: 042
     Dates: start: 20200708, end: 20200708
  8. INFLECTRA [Suspect]
     Active Substance: INFLIXIMAB-DYYB
     Dosage: 10 MG/KG, EVERY 6 WEEKS
     Route: 042
     Dates: start: 20200708, end: 20200708
  9. INFLECTRA [Suspect]
     Active Substance: INFLIXIMAB-DYYB
     Dosage: 10 MG/KG, EVERY 6 WEEKS
     Route: 042
     Dates: start: 20200708, end: 20200708
  10. INFLECTRA [Suspect]
     Active Substance: INFLIXIMAB-DYYB
     Dosage: 10 MG/KG, EVERY 6 WEEKS
     Route: 042
     Dates: start: 20200930
  11. INFLECTRA [Suspect]
     Active Substance: INFLIXIMAB-DYYB
     Dosage: UNK
  12. INFLECTRA [Suspect]
     Active Substance: INFLIXIMAB-DYYB
     Dosage: 10 MG/KG, EVERY 6 WEEKS
     Route: 042
     Dates: start: 20220511
  13. INFLECTRA [Suspect]
     Active Substance: INFLIXIMAB-DYYB
     Dosage: 10 MG/KG, EVERY 6 WEEKS
     Route: 042
     Dates: start: 20220705
  14. INFLECTRA [Suspect]
     Active Substance: INFLIXIMAB-DYYB
     Dosage: UNK
  15. INFLECTRA [Suspect]
     Active Substance: INFLIXIMAB-DYYB
     Dosage: UNK
  16. INFLECTRA [Suspect]
     Active Substance: INFLIXIMAB-DYYB
     Dosage: UNK
  17. INFLECTRA [Suspect]
     Active Substance: INFLIXIMAB-DYYB
     Dosage: 10 MG/KG, EVERY 6 WEEKS
     Route: 042
  18. ACETAMINOPHEN [Concomitant]
     Active Substance: ACETAMINOPHEN
     Dosage: 1 OR 2 DF, AS NEEDED ( EVERY 8 HOURS)
     Route: 065
  19. AZATHIOPRINE [Concomitant]
     Active Substance: AZATHIOPRINE
     Dosage: 4 DF, DAILY
  20. CALCIUM\VITAMIN D [Concomitant]
     Active Substance: CALCIUM\VITAMIN D
     Dosage: 500 MG, DAILY
     Route: 065
  21. CALCIUM\CHOLECALCIFEROL [Concomitant]
     Active Substance: CALCIUM\CHOLECALCIFEROL
     Dosage: 1 DF, TWICE DAILY
     Route: 065
  22. CELEBREX [Concomitant]
     Active Substance: CELECOXIB
     Dosage: 200 MG, TWICE DAILY
     Route: 065
  23. CIALIS [Concomitant]
     Active Substance: TADALAFIL
     Dosage: 20 MG, AS NEEDED
     Route: 065
  24. CORTIFOAM [Concomitant]
     Active Substance: HYDROCORTISONE ACETATE
     Dosage: UNK, ONCE DAILY (AT BEDTIME)
     Route: 054
  25. CORTISONE [Concomitant]
     Active Substance: CORTISONE
     Dosage: 1 DF
  26. BUDESONIDE [Concomitant]
     Active Substance: BUDESONIDE
     Dosage: 9 MG, DAILY
     Route: 065
  27. CYCLOBENZAPRINE [Concomitant]
     Active Substance: CYCLOBENZAPRINE
     Dosage: 10 MG, ONCE DAILY (AT BEDTIME)
  28. METRONIDAZOLE [Concomitant]
     Active Substance: METRONIDAZOLE
     Dosage: 500 MG, THRICE DAILY
     Route: 065
  29. NAPROXEN [Concomitant]
     Active Substance: NAPROXEN
     Dosage: 500 MG, TWICE DAILY
     Route: 065
  30. NASONEX [Concomitant]
     Active Substance: MOMETASONE FUROATE
     Dosage: UNK, TWICE DAILY
     Route: 045
  31. PREDNISONE [Concomitant]
     Active Substance: PREDNISONE
     Dosage: UNK (TAPERING)
     Route: 065
  32. PMS-ERYTHROMYCIN [Concomitant]
     Dosage: UNK, FOUR TIMES DAILY
     Route: 065
  33. ROSUVASTATIN [Concomitant]
     Active Substance: ROSUVASTATIN
     Dosage: 25 MG, DAILY
     Route: 065
  34. SOLU-MEDROL [Concomitant]
     Active Substance: METHYLPREDNISOLONE SODIUM SUCCINATE
     Dosage: UNK
     Route: 042
  35. VANCOMYCIN [Concomitant]
     Active Substance: VANCOMYCIN
     Dosage: 250 MG, FOUR TIMES DAILY
     Route: 065
  36. VOLTAREN [Concomitant]
     Active Substance: DICLOFENAC SODIUM
     Dosage: UNK, THRICE DAILY
     Route: 065

REACTIONS (14)
  - Pneumonia [Unknown]
  - Limb mass [Recovered/Resolved]
  - Nasopharyngitis [Unknown]
  - Blood pressure increased [Unknown]
  - Body temperature decreased [Recovered/Resolved]
  - Heart rate decreased [Unknown]
  - COVID-19 [Unknown]
  - Road traffic accident [Unknown]
  - Skin discolouration [Recovered/Resolved]
  - Sciatica [Unknown]
  - Off label use [Unknown]
  - Off label use [Unknown]
  - Intentional product use issue [Unknown]
  - Inappropriate schedule of product administration [Unknown]

NARRATIVE: CASE EVENT DATE: 20200526
